FAERS Safety Report 13958773 (Version 1)
Quarter: 2017Q3

REPORT INFORMATION
  Report Type: Spontaneous
  Country: US (occurrence: US)
  Receive Date: 20170911
  Receipt Date: 20170911
  Transmission Date: 20171128
  Serious: Yes (Life-Threatening, Hospitalization)
  Sender: FDA-Public Use
  Company Number: US-ELI_LILLY_AND_COMPANY-US201709001839

PATIENT

DRUGS (2)
  1. FORTEO [Suspect]
     Active Substance: TERIPARATIDE
     Indication: PRODUCT USED FOR UNKNOWN INDICATION
     Dosage: UNK UNK, UNKNOWN
     Route: 065
  2. FORTEO [Suspect]
     Active Substance: TERIPARATIDE
     Dosage: UNK, UNKNOWN
     Route: 065

REACTIONS (10)
  - Cardiac arrest [Unknown]
  - Sepsis [Unknown]
  - Postoperative wound infection [Unknown]
  - Nightmare [Unknown]
  - Staphylococcal infection [Unknown]
  - Drug dose omission [Unknown]
  - White blood cell count increased [Unknown]
  - Confusional state [Unknown]
  - Post-traumatic stress disorder [Unknown]
  - Movement disorder [Unknown]
